FAERS Safety Report 12865457 (Version 1)
Quarter: 2016Q4

REPORT INFORMATION
  Report Type: Spontaneous
  Country: US (occurrence: US)
  Receive Date: 20161020
  Receipt Date: 20161020
  Transmission Date: 20170207
  Serious: Yes (Other)
  Sender: FDA-Public Use
  Company Number: US-SUNOVION-2016SUN002573

PATIENT
  Sex: Female

DRUGS (1)
  1. LUNESTA [Suspect]
     Active Substance: ESZOPICLONE
     Dosage: UNK
     Route: 048
     Dates: end: 20161008

REACTIONS (5)
  - Insomnia [Not Recovered/Not Resolved]
  - Autoimmune disorder [Unknown]
  - Head injury [Unknown]
  - Dizziness [Unknown]
  - Drug administration error [Unknown]
